FAERS Safety Report 7292459-X (Version None)
Quarter: 2011Q1

REPORT INFORMATION
  Report Type: 
  Country: None (occurrence: None)
  Receive Date: 20110215
  Receipt Date: 20110211
  Transmission Date: 20110831
  Serious: No
  Sender: FDA-Public Use
  Company Number: US-PFIZER INC-2011031488

PATIENT
  Sex: Female
  Weight: 61.678 kg

DRUGS (2)
  1. ADVIL [Suspect]
     Indication: NASOPHARYNGITIS
     Dosage: UNK
     Route: 048
     Dates: start: 20110101, end: 20110201
  2. ROBITUSSIN [Suspect]
     Indication: COUGH
     Dosage: 2 TEASPOONS 4 X DAILY
     Route: 048
     Dates: start: 20110207

REACTIONS (3)
  - DRUG INEFFECTIVE [None]
  - COUGH [None]
  - DIZZINESS [None]
